FAERS Safety Report 5358852-7 (Version None)
Quarter: 2007Q2

REPORT INFORMATION
  Report Type: 
  Country: None (occurrence: None)
  Receive Date: 20070615
  Receipt Date: 20070606
  Transmission Date: 20071010
  Serious: Yes (Other)
  Sender: FDA-Public Use
  Company Number: FR-ROCHE-494880

PATIENT
  Age: 50 Year
  Sex: Male

DRUGS (7)
  1. CELLCEPT [Suspect]
     Route: 065
  2. CELLCEPT [Suspect]
     Route: 065
     Dates: start: 20041112, end: 20051201
  3. CELLCEPT [Suspect]
     Dosage: DOSE WAS INCREASED IN DECEMBER 2005/JANUARY 2006
     Route: 065
     Dates: start: 20051201
  4. PROGRAF [Concomitant]
     Route: 048
     Dates: start: 20031113
  5. OMEPRAZOLE [Concomitant]
     Indication: DRUG USE FOR UNKNOWN INDICATION
     Route: 048
  6. AMLOR [Concomitant]
     Route: 048
  7. CORTANCYL [Concomitant]
     Route: 048
     Dates: start: 20031113

REACTIONS (1)
  - PETIT MAL EPILEPSY [None]
